FAERS Safety Report 17458127 (Version 1)
Quarter: 2020Q1

REPORT INFORMATION
  Report Type: Spontaneous
  Country: US (occurrence: US)
  Receive Date: 20200225
  Receipt Date: 20200225
  Transmission Date: 20200409
  Serious: No
  Sender: FDA-Public Use
  Company Number: US-ROCHE-2511199

PATIENT
  Sex: Male

DRUGS (1)
  1. XOFLUZA [Suspect]
     Active Substance: BALOXAVIR MARBOXIL
     Indication: INFLUENZA
     Dosage: TWO 40 MG TABLETS ;ONGOING: UNKNOWN
     Route: 048
     Dates: start: 20190101

REACTIONS (1)
  - Nausea [Unknown]

NARRATIVE: CASE EVENT DATE: 2019
